FAERS Safety Report 5928893-7 (Version None)
Quarter: 2008Q3

REPORT INFORMATION
  Report Type: 
  Country: None (occurrence: None)
  Receive Date: 20080923
  Receipt Date: 20080612
  Transmission Date: 20090109
  Serious: Yes (Other)
  Sender: FDA-Public Use
  Company Number: US-1166383

PATIENT

DRUGS (1)
  1. TRIAMCINOLONE ACETONIDE [Suspect]
     Dosage: (INTRAOCULAR)

REACTIONS (2)
  - ENDOPHTHALMITIS [None]
  - HYPOPYON [None]
